FAERS Safety Report 22168214 (Version 1)
Quarter: 2023Q2

REPORT INFORMATION
  Report Type: Spontaneous
  Country: US (occurrence: US)
  Receive Date: 20230403
  Receipt Date: 20230403
  Transmission Date: 20230721
  Serious: No
  Sender: FDA-Public Use
  Company Number: US-PFIZER INC-202300137955

PATIENT
  Age: 83 Year
  Sex: Female

DRUGS (1)
  1. FLAGYL [Suspect]
     Active Substance: METRONIDAZOLE\METRONIDAZOLE HYDROCHLORIDE
     Indication: Diverticulitis
     Dosage: UNK
     Dates: start: 20230324

REACTIONS (2)
  - Chromaturia [Unknown]
  - Panic reaction [Unknown]

NARRATIVE: CASE EVENT DATE: 20230301
